FAERS Safety Report 6756289-7 (Version None)
Quarter: 2010Q2

REPORT INFORMATION
  Report Type: 
  Country: None (occurrence: None)
  Receive Date: 20100604
  Receipt Date: 20100531
  Transmission Date: 20101027
  Serious: Yes (Other)
  Sender: FDA-Public Use
  Company Number: BR-ROCHE-598059

PATIENT
  Sex: Female
  Weight: 70 kg

DRUGS (2)
  1. XENICAL [Suspect]
     Indication: WEIGHT CONTROL
     Dosage: INDICATION: UNKNOWN
     Route: 048
     Dates: start: 20070101, end: 20090101
  2. XENICAL [Suspect]
     Dosage: INDICATION: FOR WEIGHT LOSS.
     Route: 048
     Dates: start: 20100401

REACTIONS (4)
  - CONSTIPATION [None]
  - DRUG INEFFECTIVE [None]
  - FREQUENT BOWEL MOVEMENTS [None]
  - GALLBLADDER POLYP [None]
